FAERS Safety Report 16659483 (Version 2)
Quarter: 2019Q3

REPORT INFORMATION
  Report Type: Spontaneous
  Country: US (occurrence: US)
  Receive Date: 20190802
  Receipt Date: 20190911
  Transmission Date: 20191004
  Serious: Yes (Other)
  Sender: FDA-Public Use
  Company Number: US-ASTELLAS-2019US031002

PATIENT
  Age: 7 Decade
  Sex: Female

DRUGS (4)
  1. LEXISCAN [Suspect]
     Active Substance: REGADENOSON
     Indication: CARDIAC STRESS TEST
     Dosage: 0.08 MG/ML, ONCE
     Route: 042
     Dates: start: 20190715, end: 20190715
  2. LEXISCAN [Suspect]
     Active Substance: REGADENOSON
     Indication: CARDIAC STRESS TEST
     Dosage: 0.08 MG/ML, ONCE
     Route: 042
     Dates: start: 20190715, end: 20190715
  3. LEXISCAN [Suspect]
     Active Substance: REGADENOSON
     Indication: CARDIAC STRESS TEST
     Dosage: 0.08 MG/ML, ONCE
     Route: 042
     Dates: start: 20190715, end: 20190715
  4. LEXISCAN [Suspect]
     Active Substance: REGADENOSON
     Indication: CARDIAC STRESS TEST
     Dosage: 0.08 MG/ML, ONCE
     Route: 042
     Dates: start: 20190715, end: 20190715

REACTIONS (8)
  - Discomfort [Recovering/Resolving]
  - Headache [Recovering/Resolving]
  - Heart rate increased [Recovering/Resolving]
  - Hyperventilation [Recovering/Resolving]
  - Tremor [Recovering/Resolving]
  - Moaning [Recovering/Resolving]
  - Dyspnoea [Recovering/Resolving]
  - Musculoskeletal stiffness [Recovering/Resolving]

NARRATIVE: CASE EVENT DATE: 20190715
